FAERS Safety Report 21614379 (Version 1)
Quarter: 2022Q4

REPORT INFORMATION
  Report Type: Spontaneous
  Country: US (occurrence: None)
  Receive Date: 20221117
  Receipt Date: 20221117
  Transmission Date: 20230113
  Serious: Yes (Other)
  Sender: FDA-Public Use
  Company Number: None

PATIENT
  Age: 53 Year
  Sex: Male
  Weight: 70.5 kg

DRUGS (1)
  1. ROCURONIUM [Suspect]
     Active Substance: ROCURONIUM BROMIDE
     Indication: Neuromuscular blockade
     Dosage: OTHER FREQUENCY : ONCE;?
     Route: 040
     Dates: start: 20221117, end: 20221117

REACTIONS (1)
  - Drug ineffective [None]
